FAERS Safety Report 14988644 (Version 4)
Quarter: 2018Q4

REPORT INFORMATION
  Report Type: Report from Study
  Country: JP (occurrence: JP)
  Receive Date: 20180608
  Receipt Date: 20181022
  Transmission Date: 20190204
  Serious: Yes (Life-Threatening, Hospitalization)
  Sender: FDA-Public Use
  Company Number: JP-PFIZER INC-2018228941

PATIENT
  Age: 85 Year
  Sex: Female
  Weight: 39 kg

DRUGS (13)
  1. CELECOX [Concomitant]
     Active Substance: CELECOXIB
     Dosage: 100 MG, UNK
     Route: 048
  2. ALLELOCK [Concomitant]
     Active Substance: OLOPATADINE HYDROCHLORIDE
     Dosage: 10 MG, UNK
     Route: 048
  3. JANUVIA [Concomitant]
     Active Substance: SITAGLIPTIN PHOSPHATE
     Dosage: 50 MG, 1X/DAY, JUST BEFORE THE BREAKFAST
  4. TRESIBA [Concomitant]
     Active Substance: INSULIN DEGLUDEC
     Dosage: 5 UNITS IMMEDIATELY BEFORE SUPPER
     Route: 058
  5. XELJANZ [Suspect]
     Active Substance: TOFACITINIB CITRATE
     Indication: RHEUMATOID ARTHRITIS
     Dosage: 5 MG, 2X/DAY
     Route: 048
     Dates: start: 20171127, end: 20171225
  6. AZULFIDINE EN-TABS [Concomitant]
     Active Substance: SULFASALAZINE
     Indication: RHEUMATOID ARTHRITIS
     Dosage: UNK
  7. PROMAC /01312301/ [Concomitant]
     Active Substance: POLAPREZINC
     Indication: PROPHYLAXIS
     Dosage: 75 MG, UNK
     Route: 048
  8. GLYCYRON [GLYCYRRHIZIC ACID, AMMONIUM SALT] [Concomitant]
     Dosage: 2 DF, UNK
     Route: 048
  9. LOQOA [Concomitant]
     Route: 062
  10. VOLTAREN [Concomitant]
     Active Substance: DICLOFENAC SODIUM
     Dosage: 25 MG, UNK
     Route: 054
  11. THIOLA [Concomitant]
     Active Substance: TIOPRONIN
     Indication: RHEUMATOID ARTHRITIS
     Route: 048
  12. XELJANZ [Suspect]
     Active Substance: TOFACITINIB CITRATE
     Dosage: 5 MG, 1X/DAY
     Route: 048
     Dates: start: 20171226
  13. NOVORAPID [Concomitant]
     Active Substance: INSULIN ASPART
     Dosage: 7 UNITS IMMEDIATELY BEFORE BREAKFAST, 6 UNITS IMMEDIATELY BEFORE LUNCH, AND 5 UNITS BEFORE SUPPER
     Route: 058

REACTIONS (6)
  - Myocardial rupture [Unknown]
  - Back pain [Recovering/Resolving]
  - Dementia [Recovering/Resolving]
  - Anaemia [Unknown]
  - Decreased appetite [Recovering/Resolving]
  - Acute myocardial infarction [Unknown]

NARRATIVE: CASE EVENT DATE: 20171205
